FAERS Safety Report 10006708 (Version 2)
Quarter: 2014Q1

REPORT INFORMATION
  Report Type: Spontaneous
  Country: US (occurrence: None)
  Receive Date: 20140311
  Receipt Date: 20140314
  Transmission Date: 20141002
  Serious: Yes (Other)
  Sender: FDA-Public Use
  Company Number: CIO14016729

PATIENT
  Age: 47 Year
  Sex: Male
  Weight: 113.4 kg

DRUGS (3)
  1. NYQUIL COLD + FLU ALCOHOL 10% NIGHTTIME RELIEF, CHERRY FLAVOR(ETHANOL 10 %, DEXTROMETHORPHAN HYDROBROMIDE 30 MG, DOXYLAMINE SUCCINATE 12.5 MG, PARACETAMOL 650 MG) ORAL LIQUID, 30ML [Suspect]
     Indication: INSOMNIA
     Dosage: 1.5 DOSES
     Route: 048
  2. NYQUIL COLD + FLU ALCOHOL 10% NIGHTTIME RELIEF, CHERRY FLAVOR(ETHANOL 10 %, DEXTROMETHORPHAN HYDROBROMIDE 30 MG, DOXYLAMINE SUCCINATE 12.5 MG, PARACETAMOL 650 MG) ORAL LIQUID, 30ML [Suspect]
     Indication: NASOPHARYNGITIS
     Dosage: 1.5 DOSES
     Route: 048
  3. DEPAKOTE [Concomitant]

REACTIONS (4)
  - Grand mal convulsion [None]
  - Incorrect dose administered [None]
  - Incorrect drug administration duration [None]
  - Off label use [None]
